FAERS Safety Report 24550435 (Version 5)
Quarter: 2025Q3

REPORT INFORMATION
  Report Type: Spontaneous
  Country: US (occurrence: US)
  Receive Date: 20241025
  Receipt Date: 20250925
  Transmission Date: 20251021
  Serious: Yes (Other)
  Sender: UCB
  Company Number: US-UCBSA-2024054470

PATIENT
  Sex: Female

DRUGS (3)
  1. CIMZIA [Suspect]
     Active Substance: CERTOLIZUMAB PEGOL
     Indication: Rheumatoid arthritis
     Dosage: 200 MILLIGRAM, EV 2 WEEKS(QOW)
     Route: 058
     Dates: start: 202002
  2. CIMZIA [Suspect]
     Active Substance: CERTOLIZUMAB PEGOL
     Indication: Ankylosing spondylitis
  3. SOMA [Concomitant]
     Active Substance: CARISOPRODOL
     Indication: Product used for unknown indication

REACTIONS (8)
  - Rheumatoid arthritis [Unknown]
  - Ankylosing spondylitis [Unknown]
  - Muscle spasms [Unknown]
  - Illness [Unknown]
  - Fall [Recovering/Resolving]
  - Lower limb fracture [Unknown]
  - Pain [Recovering/Resolving]
  - Upper limb fracture [Unknown]
